FAERS Safety Report 5899157-5 (Version None)
Quarter: 2008Q3

REPORT INFORMATION
  Report Type: 
  Country: None (occurrence: None)
  Receive Date: 20080925
  Receipt Date: 20080916
  Transmission Date: 20090109
  Serious: No
  Sender: FDA-Public Use
  Company Number: US-B.I. PHARMACEUTICALS,INC./RIDGEFIELD-2008-BP-14012BP

PATIENT
  Sex: Female

DRUGS (8)
  1. MIRAPEX [Suspect]
     Indication: DEPRESSION
     Dosage: .75MG
     Route: 048
     Dates: start: 20080701, end: 20080827
  2. AVAPRO [Concomitant]
     Dosage: 300MG
  3. LIPITOR [Concomitant]
     Dosage: 10MG
  4. SAM-E [Concomitant]
     Dosage: 800MG
  5. FISH OIL [Concomitant]
     Dosage: 1200MG
  6. CYMBALTA [Concomitant]
     Dosage: 20MG
  7. ASPIRIN [Concomitant]
     Dosage: 81MG
  8. XANAX [Concomitant]
     Dosage: .5MG

REACTIONS (4)
  - DIZZINESS [None]
  - INSOMNIA [None]
  - NAUSEA [None]
  - SUDDEN ONSET OF SLEEP [None]
